FAERS Safety Report 20591891 (Version 1)
Quarter: 2022Q1

REPORT INFORMATION
  Report Type: Spontaneous
  Country: US (occurrence: US)
  Receive Date: 20220314
  Receipt Date: 20220314
  Transmission Date: 20220423
  Serious: No
  Sender: FDA-Public Use
  Company Number: US-ANIPHARMA-2022-US-001367

PATIENT
  Age: 63 Year
  Sex: Female
  Weight: 77.11 kg

DRUGS (13)
  1. FLUCONAZOLE [Suspect]
     Active Substance: FLUCONAZOLE
     Indication: Fungal infection
     Dosage: 1 TABLET DAILY FOR 3 DAYS
     Route: 048
     Dates: start: 202110
  2. VITAMIN B12 [Concomitant]
     Active Substance: CYANOCOBALAMIN
     Dosage: SHOT
  3. IRON [Concomitant]
     Active Substance: IRON
  4. ZINC [Concomitant]
     Active Substance: ZINC
  5. VITAMIN D3 [Concomitant]
     Active Substance: CHOLECALCIFEROL
  6. TIROSINT [Concomitant]
     Active Substance: LEVOTHYROXINE SODIUM
  7. WELLBUTRIN [Concomitant]
     Active Substance: BUPROPION HYDROCHLORIDE
  8. TRENTAL [Concomitant]
     Active Substance: PENTOXIFYLLINE
  9. CLONAZEPAM [Concomitant]
     Active Substance: CLONAZEPAM
     Dosage: AS NEEDED
  10. TEMAZEPAM [Concomitant]
     Active Substance: TEMAZEPAM
     Dosage: AS NEEDED
  11. DEXAMETHASONE [Concomitant]
     Active Substance: DEXAMETHASONE
  12. NORDITROPIN [Concomitant]
     Active Substance: SOMATROPIN
  13. DEPO-ESTRADIOL [Concomitant]
     Active Substance: ESTRADIOL CYPIONATE
     Dosage: INJECTION

REACTIONS (1)
  - Drug ineffective [Not Recovered/Not Resolved]

NARRATIVE: CASE EVENT DATE: 20211001
